FAERS Safety Report 4336097-7 (Version None)
Quarter: 2004Q1

REPORT INFORMATION
  Report Type: 
  Country: None (occurrence: None)
  Receive Date: 20040329
  Receipt Date: 20040105
  Transmission Date: 20041129
  Serious: No
  Sender: FDA-Public Use
  Company Number: USA040155855

PATIENT
  Age: 50 Year
  Sex: Male
  Weight: 100 kg

DRUGS (9)
  1. STRATTERA [Suspect]
     Indication: ATTENTION DEFICIT/HYPERACTIVITY DISORDER
     Dosage: 80 MG/DAY
     Dates: start: 20031201
  2. PRILOSEC [Concomitant]
  3. NAPROXEN [Concomitant]
  4. ZOCOR [Concomitant]
  5. NEURONTIN [Concomitant]
  6. LAMISIL (TERBINAFINE HYDROCHLORIDE) [Concomitant]
  7. TOPAMAX [Concomitant]
  8. SEROQUEL [Concomitant]
  9. WELLBUTRIN [Concomitant]

REACTIONS (6)
  - CONSTIPATION [None]
  - DECREASED APPETITE [None]
  - DYSURIA [None]
  - ERECTILE DYSFUNCTION [None]
  - INSOMNIA [None]
  - WEIGHT DECREASED [None]
